FAERS Safety Report 15113691 (Version 34)
Quarter: 2021Q3

REPORT INFORMATION
  Report Type: Other
  Country: DE (occurrence: DE)
  Receive Date: 20180706
  Receipt Date: 20210929
  Transmission Date: 20211014
  Serious: Yes (Hospitalization, Other)
  Sender: FDA-Public Use
  Company Number: DE-ROCHE-2091662

PATIENT
  Age: 49 Year
  Sex: Male
  Weight: 98 kg

DRUGS (33)
  1. CANDESARTAN. [Concomitant]
     Active Substance: CANDESARTAN
     Dosage: 1?1?0
  2. PARACETAMOL [Concomitant]
     Active Substance: ACETAMINOPHEN
  3. TILIDIN [Concomitant]
     Active Substance: NALOXONE HYDROCHLORIDE\TILIDINE HYDROCHLORIDE
     Dosage: 50 MG/4 MG
  4. CORTISONE [Suspect]
     Active Substance: CORTISONE
     Dosage: 4X 500MG
     Route: 042
     Dates: start: 20210625
  5. COVID?19 VACCINE NOS. [Suspect]
     Active Substance: COVID-19 VACCINE NOS
     Dosage: SECOND DOSE
     Route: 065
     Dates: start: 20210720
  6. CANDESARTAN. [Concomitant]
     Active Substance: CANDESARTAN
  7. FENISTIL [Concomitant]
     Active Substance: DIMETHINDENE
     Route: 042
     Dates: start: 20190311, end: 20190311
  8. NAPROXEN. [Concomitant]
     Active Substance: NAPROXEN
  9. OCREVUS [Suspect]
     Active Substance: OCRELIZUMAB
     Route: 042
     Dates: start: 20180319, end: 20180319
  10. OCREVUS [Suspect]
     Active Substance: OCRELIZUMAB
     Route: 042
     Dates: start: 20210907
  11. OXYCODONE [Suspect]
     Active Substance: OXYCODONE
     Indication: PRODUCT USED FOR UNKNOWN INDICATION
     Dosage: NEXT DOSE: 6 MG
     Route: 065
  12. ZOPICLONE [Concomitant]
     Active Substance: ZOPICLONE
     Indication: PAIN
     Route: 048
     Dates: start: 20180821
  13. DULOXETINE. [Concomitant]
     Active Substance: DULOXETINE
     Route: 048
     Dates: start: 20181005
  14. DULOXETINE. [Concomitant]
     Active Substance: DULOXETINE
  15. GELOMYRTOL FORTE [Concomitant]
     Active Substance: HERBALS
  16. OCREVUS [Suspect]
     Active Substance: OCRELIZUMAB
     Indication: RELAPSING-REMITTING MULTIPLE SCLEROSIS
     Route: 042
     Dates: start: 20180305, end: 20180305
  17. CORTISONE [Suspect]
     Active Substance: CORTISONE
     Indication: PREMEDICATION
     Route: 042
     Dates: start: 20190311, end: 20190311
  18. DOMINAL (PROTHIPENDYL HYDROCHLORIDE) [Suspect]
     Active Substance: PROTHIPENDYL HYDROCHLORIDE
     Indication: PRODUCT USED FOR UNKNOWN INDICATION
     Route: 065
  19. CORTISONE [Suspect]
     Active Substance: CORTISONE
     Route: 042
     Dates: start: 20190311, end: 20190311
  20. COVID?19 VACCINE NOS. [Suspect]
     Active Substance: COVID-19 VACCINE NOS
     Indication: COVID-19 IMMUNISATION
     Dosage: FIRST DOSE
     Route: 065
     Dates: start: 20210526
  21. ACC AKUT [Concomitant]
     Active Substance: ACETYLCYSTEINE
  22. OCREVUS [Suspect]
     Active Substance: OCRELIZUMAB
     Dosage: 11/SEP/2018 AND 02/SEP/2019, RECEIVED SAME SUBSEQUENT DOSE OF OCRELIZUMAB.
     Route: 042
     Dates: start: 20180821, end: 20190311
  23. OCREVUS [Suspect]
     Active Substance: OCRELIZUMAB
     Route: 042
     Dates: start: 20200306
  24. OCREVUS [Suspect]
     Active Substance: OCRELIZUMAB
     Route: 042
     Dates: start: 20210305
  25. DULOXETINE. [Concomitant]
     Active Substance: DULOXETINE
     Route: 048
  26. OCREVUS [Suspect]
     Active Substance: OCRELIZUMAB
     Route: 042
     Dates: start: 20190902
  27. CANDESARTAN. [Concomitant]
     Active Substance: CANDESARTAN
     Indication: PAIN
     Dosage: 14?16 MG
     Dates: start: 20180227
  28. ZOPICLONE [Concomitant]
     Active Substance: ZOPICLONE
     Route: 048
     Dates: start: 20170105
  29. DULOXETINE. [Concomitant]
     Active Substance: DULOXETINE
     Indication: DEPRESSION
     Route: 048
     Dates: start: 20180710
  30. MIRTAZAPINE. [Concomitant]
     Active Substance: MIRTAZAPINE
     Dosage: IN THE EVENING
  31. AMLODIPIN [Concomitant]
     Active Substance: AMLODIPINE BESYLATE
  32. AMLODIPIN [Concomitant]
     Active Substance: AMLODIPINE BESYLATE
     Dosage: 1?0?0
  33. TRIMIPRAMIN [Concomitant]
     Active Substance: TRIMIPRAMINE
     Dosage: DROPS AT NIGHT

REACTIONS (39)
  - Nasopharyngitis [Recovered/Resolved]
  - Vomiting [Recovered/Resolved]
  - Myalgia [Recovered/Resolved]
  - Sensory disturbance [Not Recovered/Not Resolved]
  - Back pain [Recovered/Resolved]
  - Influenza [Recovered/Resolved]
  - Infection [Recovered/Resolved]
  - Nervousness [Recovering/Resolving]
  - Hypersensitivity [Unknown]
  - Fatigue [Recovered/Resolved]
  - Body temperature increased [Not Recovered/Not Resolved]
  - Blood immunoglobulin G decreased [Recovered/Resolved]
  - Hypotension [Recovered/Resolved]
  - Intraocular pressure test [Recovered/Resolved]
  - Diabetes mellitus [Not Recovered/Not Resolved]
  - Anxiety [Unknown]
  - Asthenia [Recovered/Resolved]
  - White blood cell count increased [Recovered/Resolved]
  - Neuralgia [Recovering/Resolving]
  - Therapeutic product effect decreased [Unknown]
  - Nasopharyngitis [Not Recovered/Not Resolved]
  - Pyrexia [Recovered/Resolved]
  - Erythema [Recovering/Resolving]
  - Loss of consciousness [Recovered/Resolved]
  - Headache [Recovered/Resolved]
  - Nausea [Recovered/Resolved]
  - Multiple sclerosis [Unknown]
  - Cardiovascular insufficiency [Recovered/Resolved]
  - Flushing [Recovered/Resolved]
  - Depression [Unknown]
  - Paraesthesia [Recovered/Resolved]
  - Influenza like illness [Recovered/Resolved]
  - Abnormal behaviour [Recovered/Resolved]
  - Arthralgia [Recovering/Resolving]
  - Inappropriate schedule of product administration [Unknown]
  - C-reactive protein increased [Recovered/Resolved]
  - Pain [Unknown]
  - Dizziness [Recovered/Resolved]
  - Vaccination failure [Not Recovered/Not Resolved]

NARRATIVE: CASE EVENT DATE: 20180305
